FAERS Safety Report 5350783-1 (Version None)
Quarter: 2007Q2

REPORT INFORMATION
  Report Type: 
  Country: None (occurrence: None)
  Receive Date: 20070606
  Receipt Date: 20070606
  Transmission Date: 20071010
  Serious: Yes (Other)
  Sender: FDA-Public Use
  Company Number: None

PATIENT
  Age: 38 Year
  Sex: Female
  Weight: 132.4503 kg

DRUGS (1)
  1. ZYPREXA [Suspect]
     Indication: PSYCHOTIC DISORDER
     Dosage: 30 DOSES-MO. SUPPLY- @ NIGHT PO
     Route: 048
     Dates: start: 19960306, end: 20050820

REACTIONS (2)
  - DIABETES MELLITUS NON-INSULIN-DEPENDENT [None]
  - WEIGHT INCREASED [None]
